FAERS Safety Report 13372706 (Version 1)
Quarter: 2017Q1

REPORT INFORMATION
  Report Type: Spontaneous
  Country: US (occurrence: US)
  Receive Date: 20170325
  Receipt Date: 20170325
  Transmission Date: 20170429
  Serious: Yes (Hospitalization, Disabling, Other)
  Sender: FDA-Public Use
  Company Number: None

PATIENT
  Age: 65 Year
  Sex: Female
  Weight: 58.5 kg

DRUGS (6)
  1. FOSAMAX [Suspect]
     Active Substance: ALENDRONATE SODIUM
     Indication: OSTEOPOROSIS
  2. ECOTRIN [Concomitant]
     Active Substance: ASPIRIN
  3. CENTRUM VITAMINS LIQUID [Concomitant]
     Active Substance: VITAMINS
  4. FOSAMAX [Suspect]
     Active Substance: ALENDRONATE SODIUM
     Indication: OSTEOPENIA
  5. LISINOPRIL. [Concomitant]
     Active Substance: LISINOPRIL
  6. ACTONEL [Concomitant]
     Active Substance: RISEDRONATE SODIUM

REACTIONS (3)
  - Fall [None]
  - Femur fracture [None]
  - Abasia [None]

NARRATIVE: CASE EVENT DATE: 20150105
